FAERS Safety Report 18775325 (Version 1)
Quarter: 2021Q1

REPORT INFORMATION
  Report Type: Report from Study
  Country: DE (occurrence: DE)
  Receive Date: 20210122
  Receipt Date: 20210122
  Transmission Date: 20210419
  Serious: Yes (Hospitalization)
  Sender: FDA-Public Use
  Company Number: DE-BRISTOL-MYERS SQUIBB COMPANY-BMS-2021-002834

PATIENT
  Age: 47 Year
  Sex: Male
  Weight: 74 kg

DRUGS (10)
  1. BONDIOL [Suspect]
     Active Substance: ALFACALCIDOL
     Indication: PRODUCT USED FOR UNKNOWN INDICATION
     Route: 065
  2. PANTOPRAZOLE [Concomitant]
     Active Substance: PANTOPRAZOLE
     Indication: GASTROINTESTINAL DISORDER
     Dosage: 40 MILLIGRAM, QD
     Route: 048
     Dates: start: 2006
  3. EPOETIN [Suspect]
     Active Substance: ERYTHROPOIETIN
     Indication: PRODUCT USED FOR UNKNOWN INDICATION
     Route: 065
  4. PROPRANOLOL [Concomitant]
     Active Substance: PROPRANOLOL HYDROCHLORIDE
     Indication: CARDIOVASCULAR DISORDER
     Dosage: 60 MILLIGRAM, TID
     Route: 048
  5. VALSARTAN. [Concomitant]
     Active Substance: VALSARTAN
     Indication: CARDIOVASCULAR DISORDER
     Dosage: 40 MILLIGRAM, QD
     Route: 048
  6. ENTECAVIR. [Suspect]
     Active Substance: ENTECAVIR
     Indication: PRODUCT USED FOR UNKNOWN INDICATION
     Route: 065
  7. PANTOPRAZOLE SODIUM. [Suspect]
     Active Substance: PANTOPRAZOLE SODIUM
     Indication: PRODUCT USED FOR UNKNOWN INDICATION
     Route: 065
  8. FRUSEMIDE [FUROSEMIDE] [Concomitant]
     Active Substance: FUROSEMIDE
     Indication: CARDIOVASCULAR DISORDER
     Dosage: 20 MILLIGRAM, QD
     Route: 048
  9. CALCIUM ACETATE. [Suspect]
     Active Substance: CALCIUM ACETATE
     Indication: PRODUCT USED FOR UNKNOWN INDICATION
     Route: 065
  10. AGALSIDASE ALFA [Suspect]
     Active Substance: AGALSIDASE ALFA
     Indication: FABRY^S DISEASE
     Dosage: 14 MILLIGRAM, Q2WK
     Route: 041
     Dates: start: 20050727

REACTIONS (1)
  - Anaemia [Not Recovered/Not Resolved]

NARRATIVE: CASE EVENT DATE: 20080118
